FAERS Safety Report 4773000-X (Version None)
Quarter: 2005Q3

REPORT INFORMATION
  Report Type: 
  Country: None (occurrence: None)
  Receive Date: 20050916
  Receipt Date: 20050908
  Transmission Date: 20060218
  Serious: Yes (Life-Threatening, Hospitalization, Disabling)
  Sender: FDA-Public Use
  Company Number: 2005115888

PATIENT
  Age: 50 Year
  Sex: Female
  Weight: 125 kg

DRUGS (8)
  1. GENOTROPIN [Suspect]
     Indication: HYPOPITUITARISM
     Dosage: 0.1 MG (16 I.U., 1 IN 1 D)
     Dates: end: 20040302
  2. LEVOTHYROXINE SODIUM [Concomitant]
  3. GLIMEPIRIDE [Concomitant]
  4. HYDROCORTISON (HYDROCORTISONE) [Concomitant]
  5. SERTRALINE HCL [Concomitant]
  6. OMEPRAZOLE [Concomitant]
  7. MINIRIN   AVENTIS PHARMA    (DESMOPRESSIN ACETATE) [Concomitant]
  8. SPIRONOLACTONE [Concomitant]

REACTIONS (6)
  - BLINDNESS [None]
  - CRANIOPHARYNGIOMA [None]
  - HEADACHE [None]
  - HEMIANOPIA [None]
  - HYPOTHALAMO-PITUITARY DISORDERS [None]
  - NEOPLASM RECURRENCE [None]
